FAERS Safety Report 4394706-0 (Version None)
Quarter: 2004Q3

REPORT INFORMATION
  Report Type: 
  Country: None (occurrence: None)
  Receive Date: 20040706
  Receipt Date: 20040623
  Transmission Date: 20050211
  Serious: Yes (Death, Life-Threatening, Hospitalization, Other)
  Sender: FDA-Public Use
  Company Number: 2004037220

PATIENT
  Age: 73 Year
  Sex: Male
  Weight: 86.1834 kg

DRUGS (20)
  1. NORVASC [Suspect]
     Indication: HYPERTENSION
     Dates: start: 19980701, end: 20020101
  2. GEOCILLIN [Suspect]
     Indication: ILL-DEFINED DISORDER
  3. ATENOLOL [Concomitant]
  4. TORSEMIDE [Concomitant]
  5. LEVOTHYROXINE SODIUM [Concomitant]
  6. PREDNISONE TAB [Concomitant]
  7. AMITRIPTYLINE HCL [Concomitant]
  8. PANTOPRAZOLE (PANTOPRAZOLE) [Concomitant]
  9. ESOMEPRAZOLE (ESOMEPRAZOLE) [Concomitant]
  10. SUCRALFATE (SURCRALFATE) [Concomitant]
  11. PAROXETINE HYDROCHLOREID (PAROXETINE HYDROCHLORIED) [Concomitant]
  12. METOCLOPRAMIDE [Concomitant]
  13. QUINAPRIL HYDROCHLORIDE (QUIANAPRIL HYDROCHLORIDE) [Concomitant]
  14. ATENOLOL [Concomitant]
  15. NEFEDIPINE (NIFEDIOPINE) [Concomitant]
  16. FLURAZEPAM [Concomitant]
  17. OLANZAPINE [Concomitant]
  18. ALL OTHER THERAPEUTIC PRODUCTS(ALL OTEHR THERAPEUTIC PRODUCTS) [Concomitant]
  19. CYPROHEPTADINE HCL [Concomitant]
  20. METOCLOPRAMIDE [Concomitant]

REACTIONS (16)
  - ABDOMINAL PAIN [None]
  - AGITATION [None]
  - ANAPHYLACTIC SHOCK [None]
  - CARDIAC DISORDER [None]
  - COELIAC DISEASE [None]
  - CONSTIPATION [None]
  - DEPRESSION [None]
  - DIARRHOEA [None]
  - HYPOTENSION [None]
  - NOSOCOMIAL INFECTION [None]
  - PULMONARY THROMBOSIS [None]
  - RENAL FAILURE [None]
  - SEPSIS [None]
  - THROMBOSIS [None]
  - VOMITING [None]
  - WEIGHT DECREASED [None]
